FAERS Safety Report 6045534-1 (Version None)
Quarter: 2009Q1

REPORT INFORMATION
  Report Type: 
  Country: None (occurrence: None)
  Receive Date: 20090121
  Receipt Date: 20090119
  Transmission Date: 20090719
  Serious: Yes (Hospitalization)
  Sender: FDA-Public Use
  Company Number: B0553119A

PATIENT
  Age: 6 Year
  Sex: Male

DRUGS (5)
  1. SAWACILLIN [Suspect]
     Indication: DRUG USE FOR UNKNOWN INDICATION
     Dosage: 600MG PER DAY
     Route: 048
     Dates: start: 20081217, end: 20081224
  2. CELTECT [Concomitant]
     Route: 048
  3. ALIMEZINE [Concomitant]
     Route: 048
  4. DIPHENHYDRAMINE HCL [Concomitant]
     Route: 065
  5. BIOFERMIN [Concomitant]
     Route: 048

REACTIONS (2)
  - LIVER DISORDER [None]
  - URTICARIA [None]
